FAERS Safety Report 8523936-9 (Version None)
Quarter: 2012Q3

REPORT INFORMATION
  Report Type: 
  Country: None (occurrence: None)
  Receive Date: 20120720
  Receipt Date: 20120711
  Transmission Date: 20120928
  Serious: Yes (Hospitalization, Other)
  Sender: FDA-Public Use
  Company Number: JP-BRISTOL-MYERS SQUIBB COMPANY-15863905

PATIENT
  Age: 75 Year
  Sex: Male
  Weight: 77 kg

DRUGS (17)
  1. DIPHENOXYLATE HCL + ATROPINE SULFATE [Concomitant]
     Dosage: 1 DF:4/DAY
  2. TESTOSTERONE [Concomitant]
     Dosage: PATCH
  3. ATENOLOL [Concomitant]
  4. LEVOTHYROXINE SODIUM [Concomitant]
  5. FONDAPARINUX SODIUM [Concomitant]
     Route: 058
  6. LISINOPRIL [Concomitant]
  7. ATAZANAVIR [Interacting]
     Indication: HIV INFECTION
  8. RANITIDINE [Concomitant]
  9. RITONAVIR [Interacting]
     Indication: HIV INFECTION
  10. NEVIRAPINE [Suspect]
     Indication: HIV INFECTION
  11. CHOLECALCIFEROL [Concomitant]
     Dosage: 1 DF:400 UNITS
  12. BUDESONIDE [Interacting]
     Indication: COLITIS MICROSCOPIC
     Route: 048
  13. CALCITRIOL [Concomitant]
  14. LOPERAMIDE [Concomitant]
  15. LAMIVUDINE [Suspect]
     Indication: HIV INFECTION
  16. TRAZODONE HCL [Concomitant]
  17. VARDENAFIL HYDROCHLORIDE (LEVITRA) [Concomitant]

REACTIONS (2)
  - DRUG INTERACTION [None]
  - CUSHING'S SYNDROME [None]
